FAERS Safety Report 12671024 (Version 1)
Quarter: 2016Q3

REPORT INFORMATION
  Report Type: Spontaneous
  Country: US (occurrence: None)
  Receive Date: 20160819
  Receipt Date: 20160819
  Transmission Date: 20161109
  Serious: Yes (Other)
  Sender: FDA-Public Use
  Company Number: None

PATIENT
  Age: 66 Year
  Sex: Female
  Weight: 65.32 kg

DRUGS (3)
  1. AZITHROMYCIN ANHYDROUS. [Suspect]
     Active Substance: AZITHROMYCIN ANHYDROUS
     Dosage: 6 PILLS 2 TAB THEN 1 FOR 4 DAYS MOUTH
     Route: 048
  2. ARMOUR THYROID [Concomitant]
     Active Substance: THYROID, PORCINE
  3. CIPROFLOXACN [Suspect]
     Active Substance: CIPROFLOXACIN
     Indication: URINARY TRACT INFECTION
     Dosage: 20 PILLS 1 TAB 2X DAY MOUTH
     Route: 048

REACTIONS (16)
  - Anxiety [None]
  - Heart rate increased [None]
  - Oropharyngeal pain [None]
  - Fall [None]
  - Personality change [None]
  - Hypoaesthesia [None]
  - Vertigo [None]
  - Nausea [None]
  - Hypertension [None]
  - Feeling abnormal [None]
  - Dizziness [None]
  - Panic attack [None]
  - Hyperacusis [None]
  - Insomnia [None]
  - Neck pain [None]
  - Dyspepsia [None]

NARRATIVE: CASE EVENT DATE: 20130124
